FAERS Safety Report 11543428 (Version 1)
Quarter: 2015Q3

REPORT INFORMATION
  Report Type: Spontaneous
  Country: FR (occurrence: FR)
  Receive Date: 20150923
  Receipt Date: 20150923
  Transmission Date: 20151125
  Serious: Yes (Death)
  Sender: FDA-Public Use
  Company Number: PHHY2015FR112584

PATIENT
  Age: 71 Year
  Sex: Female

DRUGS (7)
  1. ENDOXAN [Suspect]
     Active Substance: CYCLOPHOSPHAMIDE
     Indication: B-CELL LYMPHOMA
     Dosage: 750 MG/M2,
     Route: 042
     Dates: start: 20111008, end: 20120309
  2. VINCRISTINE HOSPIRA [Suspect]
     Active Substance: VINCRISTINE
     Indication: B-CELL LYMPHOMA
     Dosage: 2 MG,
     Route: 042
     Dates: start: 20111008, end: 20120309
  3. UROMITEXAN [Suspect]
     Active Substance: MESNA
     Indication: B-CELL LYMPHOMA
     Route: 042
     Dates: start: 20111008, end: 20120625
  4. MABTHERA [Suspect]
     Active Substance: RITUXIMAB
     Indication: B-CELL LYMPHOMA
     Dosage: 350 MG/M2,
     Route: 042
     Dates: start: 20111010, end: 20120309
  5. CORTANCYL [Suspect]
     Active Substance: PREDNISONE
     Indication: B-CELL LYMPHOMA
     Dosage: 60 MG,
     Route: 048
     Dates: start: 20111009, end: 20120313
  6. DOXORUBICINA EBEWE [Suspect]
     Active Substance: DOXORUBICIN HYDROCHLORIDE
     Indication: B-CELL LYMPHOMA
     Route: 042
     Dates: start: 20111008, end: 20120309
  7. METHYLPREDNISOLONE MYLAN [Suspect]
     Active Substance: METHYLPREDNISOLONE
     Indication: B-CELL LYMPHOMA
     Dosage: 60 MG
     Route: 042
     Dates: start: 20111008, end: 20120309

REACTIONS (1)
  - Progressive multifocal leukoencephalopathy [Fatal]

NARRATIVE: CASE EVENT DATE: 201208
